FAERS Safety Report 6772462-6 (Version None)
Quarter: 2010Q2

REPORT INFORMATION
  Report Type: 
  Country: None (occurrence: None)
  Receive Date: 20100616
  Receipt Date: 20090615
  Transmission Date: 20101027
  Serious: No
  Sender: FDA-Public Use
  Company Number: US-ASTRAZENECA-2009UW15160

PATIENT
  Sex: Female

DRUGS (2)
  1. PULMICORT FLEXHALER [Suspect]
     Indication: ASTHMA
     Route: 055
  2. COMBIVENT [Concomitant]

REACTIONS (3)
  - DYSPNOEA [None]
  - MEDICATION ERROR [None]
  - OXYGEN SATURATION DECREASED [None]
